FAERS Safety Report 6762918-4 (Version None)
Quarter: 2010Q2

REPORT INFORMATION
  Report Type: 
  Country: None (occurrence: None)
  Receive Date: 20100608
  Receipt Date: 20100608
  Transmission Date: 20101027
  Serious: Yes (Hospitalization)
  Sender: FDA-Public Use
  Company Number: None

PATIENT
  Sex: Female
  Weight: 72.5755 kg

DRUGS (1)
  1. DEXILANT [Suspect]
     Indication: DYSPEPSIA
     Dosage: 60MG ONCE/DAY ORAL 047
     Route: 048
     Dates: start: 20100526, end: 20100602

REACTIONS (9)
  - ABDOMINAL PAIN [None]
  - DIARRHOEA [None]
  - EAR DISCOMFORT [None]
  - FLATULENCE [None]
  - HAEMORRHAGE [None]
  - LOSS OF CONSCIOUSNESS [None]
  - NO THERAPEUTIC RESPONSE [None]
  - SKIN LACERATION [None]
  - TINNITUS [None]
